FAERS Safety Report 14333543 (Version 3)
Quarter: 2018Q1

REPORT INFORMATION
  Report Type: Spontaneous
  Country: US (occurrence: US)
  Receive Date: 20171228
  Receipt Date: 20180129
  Transmission Date: 20180509
  Serious: Yes (Hospitalization, Other)
  Sender: FDA-Public Use
  Company Number: US-JNJFOC-20171228647

PATIENT
  Sex: Male

DRUGS (7)
  1. RISPERDAL [Suspect]
     Active Substance: RISPERIDONE
     Indication: AGITATION
     Dosage: AT NIGHT, STRENGTH: 5 MG
     Route: 048
     Dates: start: 2014
  2. RISPERDAL [Suspect]
     Active Substance: RISPERIDONE
     Indication: DISTURBANCE IN SOCIAL BEHAVIOUR
     Dosage: AT NIGHT
     Route: 048
     Dates: start: 2014
  3. HALDOL [Suspect]
     Active Substance: HALOPERIDOL
     Indication: PRODUCT USED FOR UNKNOWN INDICATION
     Route: 065
  4. RISPERDAL [Suspect]
     Active Substance: RISPERIDONE
     Indication: AGITATION
     Dosage: AT NIGHT
     Route: 048
     Dates: start: 2014
  5. RISPERDAL [Suspect]
     Active Substance: RISPERIDONE
     Indication: DEMENTIA
     Dosage: AT NIGHT
     Route: 048
     Dates: start: 2014
  6. RISPERDAL [Suspect]
     Active Substance: RISPERIDONE
     Indication: DISTURBANCE IN SOCIAL BEHAVIOUR
     Dosage: AT NIGHT, STRENGTH: 5 MG
     Route: 048
     Dates: start: 2014
  7. RISPERDAL [Suspect]
     Active Substance: RISPERIDONE
     Indication: DEMENTIA
     Dosage: AT NIGHT, STRENGTH: 5 MG
     Route: 048
     Dates: start: 2014

REACTIONS (14)
  - Underdose [Unknown]
  - Aortic aneurysm [Unknown]
  - Product size issue [Unknown]
  - Treatment noncompliance [Unknown]
  - Wrong technique in product usage process [Unknown]
  - Restlessness [Unknown]
  - Dementia [Unknown]
  - Adverse drug reaction [Unknown]
  - Insomnia [Unknown]
  - Product availability issue [Unknown]
  - Inappropriate schedule of drug administration [Unknown]
  - Drug dose omission [Unknown]
  - Colectomy [Unknown]
  - Living in residential institution [Unknown]

NARRATIVE: CASE EVENT DATE: 2014
